FAERS Safety Report 5987158-8 (Version None)
Quarter: 2008Q4

REPORT INFORMATION
  Report Type: 
  Country: None (occurrence: None)
  Receive Date: 20081209
  Receipt Date: 20081202
  Transmission Date: 20090506
  Serious: Yes (Disabling)
  Sender: FDA-Public Use
  Company Number: GR-PFIZER INC-2008101300

PATIENT

DRUGS (4)
  1. LIPITOR [Suspect]
     Indication: HYPERLIPIDAEMIA
     Route: 048
     Dates: start: 20081001, end: 20081126
  2. ANTIHYPERTENSIVES [Concomitant]
     Indication: HYPERTENSION
     Route: 048
  3. ANTICOAGULANTS [Concomitant]
     Route: 048
  4. CRESTOR [Concomitant]
     Route: 048
     Dates: end: 20081001

REACTIONS (2)
  - BEDRIDDEN [None]
  - MYALGIA [None]
